FAERS Safety Report 4402246-5 (Version None)
Quarter: 2004Q3

REPORT INFORMATION
  Report Type: 
  Country: None (occurrence: None)
  Receive Date: 20040716
  Receipt Date: 20040709
  Transmission Date: 20050211
  Serious: Yes (Other)
  Sender: FDA-Public Use
  Company Number: GBWYE895512JUL04

PATIENT
  Age: 73 Year
  Sex: 0

DRUGS (6)
  1. ADVIL [Suspect]
     Indication: ARTHRITIS
     Dosage: 400 MG 1X PER 1 DY ORAL
     Route: 048
     Dates: start: 20040601
  2. AMLODIPINE [Concomitant]
  3. SIMVASTATIN [Concomitant]
  4. RAMIPRIL [Concomitant]
  5. BISOPROLOL FUMARATE [Concomitant]
  6. IRON (IRON) [Concomitant]

REACTIONS (4)
  - ANAEMIA [None]
  - DUODENITIS [None]
  - OESOPHAGITIS [None]
  - UPPER GASTROINTESTINAL HAEMORRHAGE [None]
